FAERS Safety Report 5109321-0 (Version None)
Quarter: 2006Q3

REPORT INFORMATION
  Report Type: 
  Country: None (occurrence: None)
  Receive Date: 20060920
  Receipt Date: 20060901
  Transmission Date: 20061208
  Serious: Yes (Hospitalization)
  Sender: FDA-Public Use
  Company Number: IT-GLAXOSMITHKLINE-B0436868A

PATIENT
  Age: 55 Year
  Sex: Male

DRUGS (7)
  1. ROSIGLITAZONE [Suspect]
     Route: 048
     Dates: start: 20030410
  2. GLICLAZIDE [Concomitant]
  3. ASPIRIN [Concomitant]
  4. PLAVIX [Concomitant]
  5. PERINDOPRIL ERBUMINE [Concomitant]
  6. PRAVASTATIN [Concomitant]
  7. LANSOX [Concomitant]

REACTIONS (1)
  - ANGINA PECTORIS [None]
